FAERS Safety Report 8156116-X (Version None)
Quarter: 2012Q1

REPORT INFORMATION
  Report Type: 
  Country: None (occurrence: None)
  Receive Date: 20120216
  Receipt Date: 20120209
  Transmission Date: 20120608
  Serious: Yes (Hospitalization)
  Sender: FDA-Public Use
  Company Number: AUR-APL-2011-01510

PATIENT
  Age: 46 Year
  Sex: Female

DRUGS (9)
  1. LISINOPRIL [Suspect]
     Indication: PRODUCT USED FOR UNKNOWN INDICATION
     Dosage: UNKNOWN
  2. BLINDED THERAPY [Suspect]
     Indication: TYPE 2 DIABETES MELLITUS
     Dosage: BLINDED THERAPY 5 MG SAXAGLIPTIN (5 MG), UNKNOWN
     Dates: start: 20100826
  3. METFORMIN HCL [Suspect]
     Indication: PRODUCT USED FOR UNKNOWN INDICATION
     Dosage: (500 MG), UNKNOWN
  4. SPIRONOLACTONE [Suspect]
     Indication: PRODUCT USED FOR UNKNOWN INDICATION
     Dosage: UNKNOWN
  5. INSULIN ASPART (INSULIN ASPART) [Suspect]
     Indication: PRODUCT USED FOR UNKNOWN INDICATION
     Dosage: (27 IU), UNKNOWN
  6. HYDROCHLOROTHIAZIDE [Suspect]
     Indication: PRODUCT USED FOR UNKNOWN INDICATION
     Dosage: UNKNOWN
  7. INSULIN GLARGINE (INSULIN GLARGINE) [Suspect]
     Indication: PRODUCT USED FOR UNKNOWN INDICATION
     Dosage: (20 IU), UNKNOWN
  8. ASPIRIN [Concomitant]
     Indication: PRODUCT USED FOR UNKNOWN INDICATION
  9. CELEBREX [Suspect]
     Indication: ARTHRITIS
     Dosage: UNKNOWN

REACTIONS (3)
  - RENAL FAILURE ACUTE [None]
  - DEHYDRATION [None]
  - ENTERITIS [None]
